FAERS Safety Report 7801426-6 (Version None)
Quarter: 2011Q4

REPORT INFORMATION
  Report Type: 
  Country: None (occurrence: None)
  Receive Date: 20111006
  Receipt Date: 20111006
  Transmission Date: 20120403
  Serious: Yes (Hospitalization)
  Sender: FDA-Public Use
  Company Number: None

PATIENT
  Age: 67 Year
  Sex: Female
  Weight: 66 kg

DRUGS (9)
  1. VERSED [Suspect]
     Indication: PREOPERATIVE CARE
     Dosage: 1MG ONCE IV RECENT
  2. VERSED [Suspect]
     Indication: GASTROSTOMY TUBE INSERTION
     Dosage: 1MG ONCE IV RECENT
  3. LIPITOR [Concomitant]
  4. LISINOPRIL [Concomitant]
  5. AGGRENOX [Concomitant]
  6. DEMEROL [Suspect]
     Indication: PREOPERATIVE CARE
     Dosage: 50MG ONCE IV RECENT
     Route: 042
  7. DEMEROL [Suspect]
     Indication: GASTROSTOMY TUBE INSERTION
     Dosage: 50MG ONCE IV RECENT
     Route: 042
  8. POTASSIUM CHLORIDE [Concomitant]
  9. COREG [Concomitant]

REACTIONS (1)
  - BRADYCARDIA [None]
